FAERS Safety Report 25278628 (Version 1)
Quarter: 2025Q2

REPORT INFORMATION
  Report Type: Spontaneous
  Country: GB (occurrence: GB)
  Receive Date: 20250507
  Receipt Date: 20250507
  Transmission Date: 20250716
  Serious: Yes (Other)
  Sender: TEVA
  Company Number: GB-MHRA-TPP10668567C8023531YC1746386513201

PATIENT
  Age: 57 Year
  Sex: Female
  Weight: 89 kg

DRUGS (7)
  1. LOSARTAN [Suspect]
     Active Substance: LOSARTAN
     Indication: Product used for unknown indication
     Route: 065
     Dates: start: 20250321
  2. FLUCLOXACILLIN [Concomitant]
     Active Substance: FLUCLOXACILLIN
     Indication: Product used for unknown indication
     Dosage: TAKE ONE CAPSULE FOUR TIMES/DAY FOR SEVEN DAYS, DURATION: 8 DAYS, DAILY DOSE: 4 DOSAGE FORM DAILY
     Route: 065
     Dates: start: 20250319, end: 20250326
  3. SERTRALINE [Concomitant]
     Active Substance: SERTRALINE HYDROCHLORIDE
     Indication: Product used for unknown indication
     Dosage: ONE EVERY 4 DAYS
     Route: 065
     Dates: start: 20250108
  4. OMEPRAZOLE [Concomitant]
     Active Substance: OMEPRAZOLE
     Indication: Product used for unknown indication
     Dosage: TAKE ONE DAILY, DAILY DOSE: 1 DOSAGE FORM DAILY, DURATION: 115 DAYS
     Route: 065
     Dates: start: 20250108, end: 20250502
  5. AMLODIPINE [Concomitant]
     Active Substance: AMLODIPINE BESYLATE
     Indication: Product used for unknown indication
     Dosage: TAKE ONE DAILY, DAILY DOSE: 1 DOSAGE FORM DAILY
     Route: 065
     Dates: start: 20250108
  6. ERYTHROMYCIN [Concomitant]
     Active Substance: ERYTHROMYCIN
     Indication: Product used for unknown indication
     Dosage: TAKE ONE TABLET FOUR TIMES/DAY FOR SEVEN DAYS
     Route: 065
     Dates: start: 20250502
  7. ATORVASTATIN [Concomitant]
     Active Substance: ATORVASTATIN
     Indication: Product used for unknown indication
     Dosage: TAKE ONE DAILY, DAILY DOSE: 1 DOSAGE FORM DAILY
     Route: 065
     Dates: start: 20250502

REACTIONS (5)
  - Depressed mood [Recovering/Resolving]
  - Diarrhoea [Unknown]
  - Nausea [Recovered/Resolved]
  - Oral pain [Unknown]
  - Cluster headache [Recovered/Resolved]

NARRATIVE: CASE EVENT DATE: 20250402
